FAERS Safety Report 25185079 (Version 1)
Quarter: 2025Q2

REPORT INFORMATION
  Report Type: Report from Study
  Country: US (occurrence: US)
  Receive Date: 20250410
  Receipt Date: 20250410
  Transmission Date: 20250717
  Serious: Yes (Hospitalization)
  Sender: VERTEX
  Company Number: US-VERTEX PHARMACEUTICALS-2025-002020

PATIENT
  Sex: Male
  Weight: 75 kg

DRUGS (1)
  1. ALYFTREK [Suspect]
     Active Substance: DEUTIVACAFTOR\TEZACAFTOR\VANZACAFTOR
     Indication: Cystic fibrosis
     Dosage: 10 MG VANZA / 50 MG TEZA/125 MG DEUTIVA; 2 TABS ONCE DAILY
     Route: 048
     Dates: start: 20250125, end: 20250130

REACTIONS (4)
  - Aspartate aminotransferase increased [Recovered/Resolved]
  - Alanine aminotransferase increased [Recovered/Resolved]
  - Blood alkaline phosphatase increased [Recovering/Resolving]
  - Ammonia increased [Unknown]

NARRATIVE: CASE EVENT DATE: 20250101
